FAERS Safety Report 11266470 (Version 4)
Quarter: 2015Q4

REPORT INFORMATION
  Report Type: Report from Study
  Country: JP (occurrence: JP)
  Receive Date: 20150713
  Receipt Date: 20151130
  Transmission Date: 20160304
  Serious: Yes (Disabling)
  Sender: FDA-Public Use
  Company Number: JP-PFIZER INC-2015233183

PATIENT
  Age: 65 Year
  Sex: Male
  Weight: 54.4 kg

DRUGS (5)
  1. TOFACITINIB CITRATE [Suspect]
     Active Substance: TOFACITINIB CITRATE
     Indication: RHEUMATOID ARTHRITIS
     Dosage: 5 MG, 1X/DAY
     Route: 048
     Dates: start: 20141118, end: 20150224
  2. SALAZOSULFAPYRIDINE [Concomitant]
     Active Substance: SULFASALAZINE
     Dosage: UNK
  3. PREDNISOLONE. [Concomitant]
     Active Substance: PREDNISOLONE
     Dosage: 4 MG, DAILY
  4. LYRICA [Concomitant]
     Active Substance: PREGABALIN
     Route: 048
  5. TAKEPRON [Concomitant]
     Active Substance: LANSOPRAZOLE
     Route: 048

REACTIONS (1)
  - Chronic kidney disease [Unknown]

NARRATIVE: CASE EVENT DATE: 20141202
